FAERS Safety Report 5225951-X (Version None)
Quarter: 2007Q1

REPORT INFORMATION
  Report Type: 
  Country: None (occurrence: None)
  Receive Date: 20070201
  Receipt Date: 20070124
  Transmission Date: 20070707
  Serious: Yes (Other)
  Sender: FDA-Public Use
  Company Number: US-JNJFOC-20070103024

PATIENT
  Sex: Female
  Weight: 57.15 kg

DRUGS (2)
  1. REMICADE [Suspect]
     Indication: RHEUMATOID ARTHRITIS
     Route: 042
  2. LORTAB [Concomitant]
     Indication: RHEUMATOID ARTHRITIS
     Dosage: 7 YEARS

REACTIONS (3)
  - AMNESIA [None]
  - DRUG EFFECT DECREASED [None]
  - FATIGUE [None]
